FAERS Safety Report 6294521-7 (Version None)
Quarter: 2009Q3

REPORT INFORMATION
  Report Type: 
  Country: None (occurrence: None)
  Receive Date: 20090803
  Receipt Date: 20090722
  Transmission Date: 20100115
  Serious: Yes (Disabling)
  Sender: FDA-Public Use
  Company Number: FR-AMGEN-UK353204

PATIENT
  Sex: Female
  Weight: 52 kg

DRUGS (3)
  1. NEULASTA [Suspect]
     Indication: CHEMOTHERAPY
     Route: 058
     Dates: start: 20090612, end: 20090703
  2. TAXOL [Concomitant]
  3. CARBOPLATIN [Concomitant]

REACTIONS (4)
  - BONE PAIN [None]
  - FATIGUE [None]
  - HEADACHE [None]
  - PYREXIA [None]
